FAERS Safety Report 7203621-6 (Version None)
Quarter: 2010Q4

REPORT INFORMATION
  Report Type: 
  Country: None (occurrence: None)
  Receive Date: 20101230
  Receipt Date: 20101228
  Transmission Date: 20110411
  Serious: Yes (Other)
  Sender: FDA-Public Use
  Company Number: ES-PFIZER INC-2010179841

PATIENT
  Age: 9 Year
  Sex: Male

DRUGS (2)
  1. GENOTONORM [Suspect]
     Indication: BODY HEIGHT BELOW NORMAL
     Dosage: 0.7 MG, 1X/DAY
     Route: 058
     Dates: start: 20050502, end: 20100921
  2. GENOTONORM [Suspect]
     Indication: FOETAL GROWTH RESTRICTION

REACTIONS (1)
  - OSTEONECROSIS [None]
